FAERS Safety Report 7961250-0 (Version None)
Quarter: 2011Q4

REPORT INFORMATION
  Report Type: 
  Country: None (occurrence: None)
  Receive Date: 20111201
  Receipt Date: 20111201
  Transmission Date: 20120403
  Serious: Yes (Disabling)
  Sender: FDA-Public Use
  Company Number: None

PATIENT
  Sex: Male
  Weight: 90.5 kg

DRUGS (1)
  1. PROPECIA [Suspect]
     Indication: ALOPECIA
     Dosage: 1 MG DAILY ORAL
     Route: 048

REACTIONS (25)
  - ANOSMIA [None]
  - ASTHENIA [None]
  - FATIGUE [None]
  - BACK PAIN [None]
  - SEMEN VOLUME DECREASED [None]
  - SEMEN ANALYSIS ABNORMAL [None]
  - EJACULATION DISORDER [None]
  - SKIN ODOUR ABNORMAL [None]
  - POOR QUALITY SLEEP [None]
  - GYNAECOMASTIA [None]
  - NOCTURIA [None]
  - HYPERAESTHESIA [None]
  - TINNITUS [None]
  - GINGIVAL BLEEDING [None]
  - APATHY [None]
  - BREAST CYST [None]
  - LOSS OF LIBIDO [None]
  - HYPERKERATOSIS [None]
  - LIBIDO DECREASED [None]
  - DRY SKIN [None]
  - ANXIETY [None]
  - ANHEDONIA [None]
  - MUSCLE TWITCHING [None]
  - ERECTILE DYSFUNCTION [None]
  - MEMORY IMPAIRMENT [None]
